FAERS Safety Report 13724460 (Version 1)
Quarter: 2017Q3

REPORT INFORMATION
  Report Type: Spontaneous
  Country: CH (occurrence: CH)
  Receive Date: 20170706
  Receipt Date: 20170706
  Transmission Date: 20171127
  Serious: Yes (Other)
  Sender: FDA-Public Use
  Company Number: CH-ASTRAZENECA-2017SE67149

PATIENT
  Age: 42 Year
  Sex: Female
  Weight: 91 kg

DRUGS (9)
  1. PANTOPRAZOLE [Concomitant]
     Active Substance: PANTOPRAZOLE
     Indication: GASTROOESOPHAGEAL REFLUX DISEASE
     Route: 048
     Dates: start: 20111206
  2. CRESTOR [Suspect]
     Active Substance: ROSUVASTATIN CALCIUM
     Indication: HYPERCHOLESTEROLAEMIA
     Route: 048
     Dates: start: 20110704, end: 20110805
  3. IBUPROFEN. [Concomitant]
     Active Substance: IBUPROFEN
  4. DAFALGAN [Concomitant]
     Active Substance: ACETAMINOPHEN
  5. ZYPREXA [Concomitant]
     Active Substance: OLANZAPINE
     Indication: SCHIZOPHRENIA
     Dosage: 10.0MG UNKNOWN
     Route: 048
     Dates: start: 201008
  6. FLUOXETIN [Concomitant]
     Active Substance: FLUOXETINE HYDROCHLORIDE
     Indication: DEPRESSION
     Route: 048
     Dates: start: 20170103
  7. MEFENAMIN [Concomitant]
     Active Substance: MEFENAMIC ACID
  8. CRESTOR [Suspect]
     Active Substance: ROSUVASTATIN CALCIUM
     Indication: HYPERCHOLESTEROLAEMIA
     Route: 048
     Dates: start: 20110806, end: 20170606
  9. MACROGOL [Concomitant]
     Active Substance: POLYETHYLENE GLYCOLS

REACTIONS (3)
  - Arthralgia [Recovered/Resolved]
  - Ligament rupture [Recovered/Resolved]
  - Fascial rupture [Not Recovered/Not Resolved]

NARRATIVE: CASE EVENT DATE: 20140523
